FAERS Safety Report 21276216 (Version 2)
Quarter: 2024Q2

REPORT INFORMATION
  Report Type: Report from Study
  Country: US (occurrence: US)
  Receive Date: 20220831
  Receipt Date: 20240517
  Transmission Date: 20240716
  Serious: Yes (Hospitalization)
  Sender: FDA-Public Use
  Company Number: US-ABBVIE-22K-163-4429025-00

PATIENT
  Sex: Male
  Weight: 98.9 kg

DRUGS (10)
  1. HUMIRA [Suspect]
     Active Substance: ADALIMUMAB
     Indication: Rheumatoid arthritis
     Dosage: CITRATE FREE, FORM STRENGTH: 40 MILLIGRAM
     Route: 058
     Dates: start: 202111
  2. HUMIRA [Suspect]
     Active Substance: ADALIMUMAB
     Route: 058
  3. HUMIRA [Suspect]
     Active Substance: ADALIMUMAB
     Route: 058
  4. MODERNA COVID-19 VACCINE [Suspect]
     Active Substance: ELASOMERAN
     Indication: COVID-19 immunisation
     Dosage: ONE IN ONCE
     Route: 030
     Dates: start: 202205, end: 202205
  5. MODERNA COVID-19 VACCINE [Suspect]
     Active Substance: ELASOMERAN
     Indication: COVID-19 immunisation
     Dosage: ONE IN ONCE
     Route: 030
     Dates: start: 202105, end: 202105
  6. BUPROPION [Concomitant]
     Active Substance: BUPROPION
     Indication: Depression
  7. METOPROLOL [Concomitant]
     Active Substance: METOPROLOL
     Indication: Blood pressure measurement
  8. BACLOFEN [Concomitant]
     Active Substance: BACLOFEN
     Indication: Muscle spasms
  9. PRIMID [Concomitant]
     Indication: Tremor
  10. BUSPIRONE [Concomitant]
     Active Substance: BUSPIRONE HYDROCHLORIDE
     Indication: Anxiety

REACTIONS (11)
  - Hepatic steatosis [Unknown]
  - Injection site haemorrhage [Recovered/Resolved]
  - COVID-19 [Recovered/Resolved]
  - Needle issue [Unknown]
  - Rheumatoid arthritis [Not Recovered/Not Resolved]
  - Incorrect dose administered [Unknown]
  - Hepatic enzyme increased [Not Recovered/Not Resolved]
  - Traumatic lung injury [Unknown]
  - Gastrooesophageal reflux disease [Unknown]
  - Atypical pneumonia [Unknown]
  - Heart rate increased [Unknown]

NARRATIVE: CASE EVENT DATE: 20220101
